FAERS Safety Report 21298018 (Version 1)
Quarter: 2022Q3

REPORT INFORMATION
  Report Type: Spontaneous
  Country: US (occurrence: None)
  Receive Date: 20220902
  Receipt Date: 20220902
  Transmission Date: 20221027
  Serious: No
  Sender: FDA-Public Use
  Company Number: None

PATIENT
  Age: 63 Year
  Sex: Male
  Weight: 127.46 kg

DRUGS (1)
  1. ERENUMAB-AOOE [Suspect]
     Active Substance: ERENUMAB-AOOE
     Indication: Migraine prophylaxis
     Dosage: 70 MG OTHER SQ
     Route: 058
     Dates: start: 20211014, end: 20220128

REACTIONS (2)
  - Injection related reaction [None]
  - Visual field defect [None]

NARRATIVE: CASE EVENT DATE: 20220126
